FAERS Safety Report 12354890 (Version 1)
Quarter: 2016Q2

REPORT INFORMATION
  Report Type: Spontaneous
  Country: US (occurrence: None)
  Receive Date: 20160510
  Receipt Date: 20160510
  Transmission Date: 20160815
  Serious: Yes (Other)
  Sender: FDA-Public Use
  Company Number: None

PATIENT
  Age: 74 Year
  Sex: Female
  Weight: 70.31 kg

DRUGS (8)
  1. DHEA [Concomitant]
     Active Substance: PRASTERONE
  2. TRIAMTERENE. [Concomitant]
     Active Substance: TRIAMTERENE
  3. MELATONIN [Concomitant]
     Active Substance: MELATONIN
  4. SAIZEN [Concomitant]
     Active Substance: SOMATROPIN
  5. ARMOUR THYROID [Concomitant]
     Active Substance: THYROID, PORCINE
  6. ECOTRIN [Concomitant]
     Active Substance: ASPIRIN
  7. ALDACTONE [Concomitant]
     Active Substance: SPIRONOLACTONE
  8. ATORVASTATIN, 40 MG MYLAN [Suspect]
     Active Substance: ATORVASTATIN
     Indication: CEREBROVASCULAR ACCIDENT PROPHYLAXIS
     Route: 048

REACTIONS (8)
  - Blood glucose increased [None]
  - Aphasia [None]
  - Amnesia [None]
  - Vision blurred [None]
  - Decreased appetite [None]
  - Tinnitus [None]
  - Dizziness [None]
  - Sedation [None]

NARRATIVE: CASE EVENT DATE: 20160115
